FAERS Safety Report 16030712 (Version 5)
Quarter: 2019Q3

REPORT INFORMATION
  Report Type: Spontaneous
  Country: US (occurrence: US)
  Receive Date: 20190304
  Receipt Date: 20190930
  Transmission Date: 20191004
  Serious: No
  Sender: FDA-Public Use
  Company Number: US-PFIZER INC-2019088331

PATIENT
  Age: 78 Year
  Sex: Female

DRUGS (4)
  1. IBRANCE [Suspect]
     Active Substance: PALBOCICLIB
     Dosage: 100 MG, DAILY
     Dates: start: 20190131
  2. FASLODEX [Concomitant]
     Active Substance: FULVESTRANT
     Dosage: UNK
  3. IBRANCE [Suspect]
     Active Substance: PALBOCICLIB
     Dosage: 100 MG, CYCLIC (1 ON DAYS 1-21 )
     Dates: start: 20190130
  4. IBRANCE [Suspect]
     Active Substance: PALBOCICLIB
     Indication: BREAST CANCER FEMALE
     Dosage: 100 MG, UNK
     Dates: start: 20171128

REACTIONS (6)
  - Gastric disorder [Unknown]
  - Fatigue [Unknown]
  - Sinus disorder [Unknown]
  - Raynaud^s phenomenon [Unknown]
  - Diarrhoea [Recovered/Resolved]
  - Skin depigmentation [Unknown]

NARRATIVE: CASE EVENT DATE: 2019
